FAERS Safety Report 8529907-0 (Version None)
Quarter: 2012Q3

REPORT INFORMATION
  Report Type: 
  Country: None (occurrence: None)
  Receive Date: 20120723
  Receipt Date: 20120712
  Transmission Date: 20120928
  Serious: Yes (Hospitalization, Disabling, Other)
  Sender: FDA-Public Use
  Company Number: PE-GENZYME-FABR-1002633

PATIENT
  Sex: Male

DRUGS (1)
  1. FABRAZYME [Suspect]
     Indication: FABRY'S DISEASE
     Dosage: 1 MG/KG, Q2W
     Route: 042
     Dates: start: 20111210

REACTIONS (3)
  - AMAUROSIS [None]
  - OPTIC NEURITIS [None]
  - CEREBRAL INFARCTION [None]
